FAERS Safety Report 6314031-8 (Version None)
Quarter: 2009Q3

REPORT INFORMATION
  Report Type: 
  Country: None (occurrence: None)
  Receive Date: 20090818
  Receipt Date: 20090723
  Transmission Date: 20100115
  Serious: Yes (Other)
  Sender: FDA-Public Use
  Company Number: PHHY2009MX34196

PATIENT
  Age: 89 Year
  Sex: Male

DRUGS (1)
  1. EXELON [Suspect]
     Indication: DEMENTIA ALZHEIMER'S TYPE
     Dosage: 1PATCH (5 CM2), QD
     Route: 062
     Dates: start: 20090530, end: 20090531

REACTIONS (5)
  - ANAPHYLACTIC REACTION [None]
  - CONVULSION [None]
  - CRANIAL NERVE PARALYSIS [None]
  - HEARING IMPAIRED [None]
  - TREMOR [None]
